FAERS Safety Report 7582397-7 (Version None)
Quarter: 2011Q2

REPORT INFORMATION
  Report Type: 
  Country: None (occurrence: None)
  Receive Date: 20110630
  Receipt Date: 20110620
  Transmission Date: 20111010
  Serious: Yes (Other)
  Sender: FDA-Public Use
  Company Number: US-JNJFOC-20110601418

PATIENT
  Sex: Female
  Weight: 98.88 kg

DRUGS (6)
  1. INFLIXIMAB, RECOMBINANT [Suspect]
     Indication: CROHN'S DISEASE
     Route: 042
     Dates: start: 20010220
  2. ANTIBIOTICS [Concomitant]
     Indication: CROHN'S DISEASE
  3. VITAMIN B-12 [Concomitant]
     Indication: CROHN'S DISEASE
  4. MESALAMINE [Concomitant]
     Indication: CROHN'S DISEASE
  5. CALCIUM CARBONATE [Concomitant]
     Indication: CROHN'S DISEASE
  6. ANTIDEPRESSANTS [Concomitant]
     Indication: CROHN'S DISEASE

REACTIONS (1)
  - ANAL STENOSIS [None]
